FAERS Safety Report 8116064-8 (Version None)
Quarter: 2012Q1

REPORT INFORMATION
  Report Type: 
  Country: None (occurrence: None)
  Receive Date: 20120206
  Receipt Date: 20120126
  Transmission Date: 20120608
  Serious: Yes (Hospitalization)
  Sender: FDA-Public Use
  Company Number: DE-ROCHE-684732

PATIENT
  Age: 59 Year
  Sex: Male

DRUGS (18)
  1. NON-STEROIDAL ANTI-INFLAMMATORY DRUG NOS [Concomitant]
  2. CARVEDILOL [Concomitant]
  3. CALCIUM [Concomitant]
     Route: 048
  4. ACETAMINOPHEN [Concomitant]
     Dosage: SINGLE DOSE ON 23 JUL 07 AND ON 6 AUG 07
     Dates: start: 20070723, end: 20070806
  5. DICLOFENAC [Concomitant]
  6. CALCIVID [Concomitant]
  7. MABTHERA [Suspect]
     Route: 065
  8. MABTHERA [Suspect]
     Route: 065
  9. OMEPRAZOLE [Concomitant]
     Route: 048
  10. SIMVASTATIN [Concomitant]
  11. MABTHERA [Suspect]
     Indication: RHEUMATOID ARTHRITIS
     Route: 065
  12. PREDNISONE TAB [Concomitant]
  13. ASPIRIN [Concomitant]
  14. FOLIC ACID [Concomitant]
  15. MABTHERA [Suspect]
     Route: 065
  16. METHOTREXATE [Suspect]
     Indication: RHEUMATOID ARTHRITIS
     Route: 048
     Dates: start: 19990201, end: 20080101
  17. METHOTREXATE [Suspect]
     Route: 048
  18. PREDNISOLONE SODIUM SUCCINATE INJ [Concomitant]
     Dosage: SINGLE DOSE ON 23 JUL 07 AND ON 6 AUG 07
     Dates: start: 20070723, end: 20070806

REACTIONS (3)
  - RESPIRATORY TRACT INFECTION [None]
  - PULMONARY FIBROSIS [None]
  - APHASIA [None]
